FAERS Safety Report 11076420 (Version 2)
Quarter: 2015Q2

REPORT INFORMATION
  Report Type: Report from Study
  Country: BE (occurrence: BE)
  Receive Date: 20150429
  Receipt Date: 20150505
  Transmission Date: 20150821
  Serious: Yes (Death, Hospitalization)
  Sender: FDA-Public Use
  Company Number: BE-JNJFOC-20150414548

PATIENT
  Age: 87 Year
  Sex: Female

DRUGS (7)
  1. MEDROL [Concomitant]
     Active Substance: METHYLPREDNISOLONE
     Route: 048
  2. BURINEX [Concomitant]
     Active Substance: BUMETANIDE
     Route: 048
  3. ASAFLOW [Concomitant]
     Active Substance: ASPIRIN
     Route: 048
  4. EUSAPRIM [Concomitant]
     Route: 042
  5. IBRUTINIB [Suspect]
     Active Substance: IBRUTINIB
     Indication: CHRONIC LYMPHOCYTIC LEUKAEMIA
     Route: 048
     Dates: start: 20140818, end: 201412
  6. MINITRAN (NITROGLYCERIN) [Concomitant]
     Route: 062
  7. PANTOMED [Concomitant]
     Active Substance: DEXPANTHENOL
     Route: 048

REACTIONS (2)
  - Hip fracture [Unknown]
  - Pneumocystis jirovecii pneumonia [Fatal]

NARRATIVE: CASE EVENT DATE: 20141108
